FAERS Safety Report 15169646 (Version 2)
Quarter: 2018Q3

REPORT INFORMATION
  Report Type: Report from Study
  Country: US (occurrence: US)
  Receive Date: 20180720
  Receipt Date: 20180901
  Transmission Date: 20181010
  Serious: Yes (Life-Threatening, Hospitalization, Other)
  Sender: FDA-Public Use
  Company Number: US-AMGEN-USASL2018097380

PATIENT
  Age: 65 Year
  Sex: Male

DRUGS (4)
  1. ENBREL [Suspect]
     Active Substance: ETANERCEPT
     Dosage: 50 MG, UNK
     Route: 065
  2. ENBREL [Suspect]
     Active Substance: ETANERCEPT
     Dosage: 50 MG, UNK
     Route: 065
     Dates: start: 2018, end: 201803
  3. COSENTYX [Concomitant]
     Active Substance: SECUKINUMAB
     Indication: PSORIATIC ARTHROPATHY
     Dosage: 300 MG, Q4WK
     Route: 065
     Dates: start: 20180326, end: 20180426
  4. ENBREL [Suspect]
     Active Substance: ETANERCEPT
     Indication: PSORIATIC ARTHROPATHY
     Dosage: 50 MG, UNK
     Route: 058
     Dates: start: 20130316, end: 2017

REACTIONS (3)
  - Syncope [Unknown]
  - Dyspnoea [Recovered/Resolved]
  - Drug effect delayed [Unknown]

NARRATIVE: CASE EVENT DATE: 20171008
